FAERS Safety Report 20408635 (Version 2)
Quarter: 2022Q1

REPORT INFORMATION
  Report Type: Spontaneous
  Country: None (occurrence: US)
  Receive Date: 20220201
  Receipt Date: 20220211
  Transmission Date: 20220424
  Serious: Yes (Hospitalization, Other)
  Sender: FDA-Public Use
  Company Number: US-Sunstar Americas Inc.-2124489

PATIENT
  Sex: Male
  Weight: 79.5 kg

DRUGS (5)
  1. PAROEX [Suspect]
     Active Substance: CHLORHEXIDINE GLUCONATE
     Indication: Pharyngitis
     Route: 002
     Dates: start: 20201010, end: 20201028
  2. DEXTROSE MONOHYDRATE [Concomitant]
     Active Substance: DEXTROSE MONOHYDRATE
     Dates: start: 20201010, end: 20201010
  3. POTASSIUM BICARBONATE [Concomitant]
     Active Substance: POTASSIUM BICARBONATE
     Route: 002
     Dates: start: 20201010, end: 20201010
  4. FAMOTIDINE [Concomitant]
     Active Substance: FAMOTIDINE
     Dates: start: 20201010, end: 20201010
  5. PROCHLORPERAZINE [Concomitant]
     Active Substance: PROCHLORPERAZINE
     Route: 042
     Dates: start: 20201010, end: 20201010

REACTIONS (8)
  - Asthenia [Unknown]
  - Cardiogenic shock [Unknown]
  - Aortic valve replacement [Unknown]
  - Burkholderia infection [Unknown]
  - Fungaemia [Unknown]
  - Lung assist device therapy [Unknown]
  - Acute kidney injury [Unknown]
  - Burkholderia test positive [Unknown]

NARRATIVE: CASE EVENT DATE: 20201010
